FAERS Safety Report 5148491-5 (Version None)
Quarter: 2006Q4

REPORT INFORMATION
  Report Type: 
  Country: None (occurrence: None)
  Receive Date: 20061106
  Receipt Date: 20061026
  Transmission Date: 20070319
  Serious: Yes (Other)
  Sender: FDA-Public Use
  Company Number: HQWYE260818OCT06

PATIENT
  Age: 76 Year
  Sex: Female

DRUGS (4)
  1. CORDARONE [Suspect]
     Indication: ARRHYTHMIA
     Dosage: 200 MG 1X PER 1 DAY ORAL
     Route: 048
     Dates: start: 20060609
  2. ACENOCOUMAROL (ACENOCOUMAROL) [Concomitant]
  3. CANDESARTAN (CANDESARTAN) [Concomitant]
  4. TEMAZEPAM [Concomitant]

REACTIONS (1)
  - ANAEMIA [None]
